FAERS Safety Report 12572391 (Version 6)
Quarter: 2017Q1

REPORT INFORMATION
  Report Type: Report from Study
  Country: JP (occurrence: JP)
  Receive Date: 20160719
  Receipt Date: 20170320
  Transmission Date: 20170428
  Serious: Yes (Death, Hospitalization)
  Sender: FDA-Public Use
  Company Number: PHJP2016JP020272

PATIENT
  Age: 63 Year
  Sex: Female

DRUGS (10)
  1. CALONAL [Concomitant]
     Active Substance: ACETAMINOPHEN
     Indication: PRODUCT USED FOR UNKNOWN INDICATION
     Dosage: UNK
     Route: 065
  2. RANMARK [Concomitant]
     Active Substance: DENOSUMAB
     Indication: PRODUCT USED FOR UNKNOWN INDICATION
     Dosage: UNK
     Route: 065
  3. TAFINLAR [Suspect]
     Active Substance: DABRAFENIB MESYLATE
     Indication: MALIGNANT MELANOMA STAGE IV
     Dosage: 300 MG, QD
     Route: 048
     Dates: start: 20160603, end: 20160618
  4. TAFINLAR [Suspect]
     Active Substance: DABRAFENIB MESYLATE
     Dosage: UNK
     Route: 048
     Dates: start: 20160704, end: 20160704
  5. TRAMETINIB [Suspect]
     Active Substance: TRAMETINIB
     Dosage: UNK
     Route: 048
     Dates: start: 20160704, end: 20160704
  6. TRAMETINIB [Suspect]
     Active Substance: TRAMETINIB
     Dosage: UNK
     Route: 048
     Dates: start: 20160711, end: 20161231
  7. TRAMETINIB [Suspect]
     Active Substance: TRAMETINIB
     Indication: MALIGNANT MELANOMA STAGE IV
     Dosage: 2 MG, QD
     Route: 048
     Dates: start: 20160603, end: 20160618
  8. PREDONINE [Concomitant]
     Active Substance: PREDNISOLONE
     Indication: PRODUCT USED FOR UNKNOWN INDICATION
     Dosage: UNK
     Route: 065
  9. DENOTAS [Concomitant]
     Active Substance: CALCIUM CARBONATE\CHOLECALCIFEROL\MAGNESIUM CARBONATE
     Indication: PRODUCT USED FOR UNKNOWN INDICATION
     Dosage: UNK
     Route: 065
  10. TAFINLAR [Suspect]
     Active Substance: DABRAFENIB MESYLATE
     Dosage: UNK
     Route: 048
     Dates: start: 20160711, end: 20161231

REACTIONS (10)
  - Erythema [Recovered/Resolved]
  - Malignant melanoma stage IV [Fatal]
  - Hepatic function abnormal [Unknown]
  - Pyrexia [Unknown]
  - Erythema [Recovered/Resolved]
  - Toxic skin eruption [Recovered/Resolved]
  - White blood cell count decreased [Recovered/Resolved]
  - Hyponatraemia [Not Recovered/Not Resolved]
  - Drug ineffective [Unknown]
  - Toxic skin eruption [Recovered/Resolved]

NARRATIVE: CASE EVENT DATE: 20160618
